FAERS Safety Report 15318654 (Version 1)
Quarter: 2018Q3

REPORT INFORMATION
  Report Type: Spontaneous
  Country: US (occurrence: US)
  Receive Date: 20180826
  Receipt Date: 20180826
  Transmission Date: 20181010
  Serious: No
  Sender: FDA-Public Use
  Company Number: US-JNJFOC-20180732576

PATIENT
  Sex: Female

DRUGS (2)
  1. MENS ROGAINE [Suspect]
     Active Substance: MINOXIDIL
     Route: 061
  2. MENS ROGAINE [Suspect]
     Active Substance: MINOXIDIL
     Indication: ALOPECIA
     Route: 061

REACTIONS (7)
  - Pruritus [Unknown]
  - Skin burning sensation [Unknown]
  - Intentional product misuse [Unknown]
  - Skin exfoliation [Unknown]
  - Skin irritation [Recovered/Resolved]
  - Product use issue [Unknown]
  - Dandruff [Unknown]
